FAERS Safety Report 4854030-6 (Version None)
Quarter: 2005Q4

REPORT INFORMATION
  Report Type: 
  Country: None (occurrence: None)
  Receive Date: 20051213
  Receipt Date: 20051128
  Transmission Date: 20060501
  Serious: Yes (Death)
  Sender: FDA-Public Use
  Company Number: 2005S1008527

PATIENT
  Age: 49 Year
  Sex: Female
  Weight: 63.5036 kg

DRUGS (7)
  1. FENTANYL [Suspect]
     Indication: BRAIN NEOPLASM
     Dosage: 50 MCG/HR; Q3D, TRANS
     Route: 062
     Dates: start: 20050810, end: 20050904
  2. PHENYTON SODIUM 1GR CAP [Suspect]
     Indication: CONVULSION
     Dosage: 300 MG; BID
     Dates: start: 20050101
  3. DEXAMETHASONE [Concomitant]
  4. PANTOPRAZOLE SODIUM [Concomitant]
  5. PARACETAMOL [Concomitant]
  6. CEPHALEXIN [Concomitant]
  7. OXYCODONE HCL [Concomitant]

REACTIONS (4)
  - APNOEA [None]
  - CONVULSION [None]
  - DEPRESSED LEVEL OF CONSCIOUSNESS [None]
  - FLUID INTAKE REDUCED [None]
